FAERS Safety Report 12167984 (Version 1)
Quarter: 2016Q1

REPORT INFORMATION
  Report Type: Spontaneous
  Country: US (occurrence: None)
  Receive Date: 20160309
  Receipt Date: 20160309
  Transmission Date: 20160526
  Serious: Yes (Other)
  Sender: FDA-Public Use
  Company Number: None

PATIENT
  Age: 30 Year
  Sex: Female

DRUGS (1)
  1. DIHYDROERGOTAMINE MESYLATE 1MG/ML PERRIGO [Suspect]
     Active Substance: DIHYDROERGOTAMINE MESYLATE
     Indication: MIGRAINE
     Route: 058
     Dates: start: 20160301, end: 20160306

REACTIONS (4)
  - Asthenia [None]
  - Fatigue [None]
  - Injection site bruising [None]
  - Liquid product physical issue [None]

NARRATIVE: CASE EVENT DATE: 20160304
